FAERS Safety Report 18237193 (Version 1)
Quarter: 2020Q3

REPORT INFORMATION
  Report Type: Spontaneous
  Country: US (occurrence: US)
  Receive Date: 20200907
  Receipt Date: 20200907
  Transmission Date: 20201103
  Serious: Yes (Hospitalization)
  Sender: FDA-Public Use
  Company Number: US-GLAND PHARMA LIMITED-2089455

PATIENT

DRUGS (6)
  1. ETOPOSIDE. [Suspect]
     Active Substance: ETOPOSIDE
     Route: 042
  2. PACLITAXEL. [Suspect]
     Active Substance: PACLITAXEL
     Route: 042
  3. CARBOPLATIN. [Suspect]
     Active Substance: CARBOPLATIN
     Indication: NON-SMALL CELL LUNG CANCER
     Route: 042
  4. CISPLATIN. [Suspect]
     Active Substance: CISPLATIN
     Route: 042
  5. PEMETREXED. [Suspect]
     Active Substance: PEMETREXED
  6. DURVALUMAB. [Concomitant]
     Active Substance: DURVALUMAB

REACTIONS (1)
  - Clostridium difficile colitis [Unknown]
